FAERS Safety Report 6742489-9 (Version None)
Quarter: 2010Q2

REPORT INFORMATION
  Report Type: 
  Country: None (occurrence: None)
  Receive Date: 20100526
  Receipt Date: 20100518
  Transmission Date: 20101027
  Serious: Yes (Disabling)
  Sender: FDA-Public Use
  Company Number: US-ROCHE-704485

PATIENT
  Sex: Male
  Weight: 88.7 kg

DRUGS (15)
  1. BEVACIZUMAB [Suspect]
     Indication: NON-SMALL CELL LUNG CANCER
     Route: 042
     Dates: start: 20100402
  2. GEMCITABINE HCL [Suspect]
     Indication: NON-SMALL CELL LUNG CANCER
     Route: 042
     Dates: start: 20100402
  3. PEMETREXED [Suspect]
     Indication: NON-SMALL CELL LUNG CANCER
     Route: 042
     Dates: start: 20100402
  4. SIMVASTATIN [Concomitant]
     Dosage: FREQUENCY; QD
     Route: 048
  5. HYDROCHLOROTHIAZIDE [Concomitant]
     Route: 048
  6. METOPROLOL [Concomitant]
     Route: 048
  7. OXYBUTYNIN [Concomitant]
     Dosage: FREQUENCY; QD
     Route: 048
  8. ASPIRIN [Concomitant]
     Route: 048
  9. DEXAMETHASONE [Concomitant]
     Dosage: DAY BEFORE AND AFTER CHEMO
     Route: 048
     Dates: start: 20100326
  10. BENADRYL [Concomitant]
     Route: 048
  11. FOLIC ACID [Concomitant]
     Route: 048
     Dates: start: 20100326
  12. EUCERIN CALMING ITCH-RELIEF [Concomitant]
     Dosage: DRUG REPORTED AS: EUCERIN ITCH RELIEF
  13. NICODERM CQ [Concomitant]
     Dosage: FREQUENCY REPORTED: 1 PATCH QD, DRUG REPORTED AS: NICODERM CO
     Dates: start: 20100402
  14. COMPAZINE [Concomitant]
     Dosage: FREQUENCY; QD,
     Route: 048
     Dates: start: 20100326
  15. TRIAMCINOLONE ACETONIDE [Concomitant]
     Dosage: FREQUENCY: TID PRN
     Route: 061

REACTIONS (2)
  - RETINAL HAEMORRHAGE [None]
  - VITREOUS HAEMORRHAGE [None]
